FAERS Safety Report 22131676 (Version 2)
Quarter: 2023Q1

REPORT INFORMATION
  Report Type: Spontaneous
  Country: US (occurrence: US)
  Receive Date: 20230323
  Receipt Date: 20230329
  Transmission Date: 20230417
  Serious: No
  Sender: FDA-Public Use
  Company Number: US-PFIZER INC-202300124751

PATIENT
  Age: 70 Year
  Sex: Female

DRUGS (3)
  1. EUCRISA [Suspect]
     Active Substance: CRISABOROLE
     Indication: Pruritus
     Dosage: UNK, 2X/DAY (APPLY TO EYELIDS AND HANDS TWICE A DAY)
     Dates: start: 2020
  2. EUCRISA [Suspect]
     Active Substance: CRISABOROLE
     Indication: Erythema
  3. EUCRISA [Suspect]
     Active Substance: CRISABOROLE
     Indication: Rash

REACTIONS (3)
  - Drug ineffective for unapproved indication [Unknown]
  - Off label use [Unknown]
  - Expired product administered [Unknown]
